FAERS Safety Report 6752769-9 (Version None)
Quarter: 2010Q2

REPORT INFORMATION
  Report Type: 
  Country: None (occurrence: None)
  Receive Date: 20100602
  Receipt Date: 20100602
  Transmission Date: 20101027
  Serious: Yes (Hospitalization)
  Sender: FDA-Public Use
  Company Number: None

PATIENT
  Age: 59 Year
  Sex: Male
  Weight: 95.71 kg

DRUGS (4)
  1. MOXIFLOXACIN [Suspect]
     Indication: BRONCHITIS
     Dosage: 400 MG EVERY DAY PO
     Route: 048
     Dates: start: 20100517, end: 20100518
  2. MOXIFLOXACIN [Suspect]
     Indication: INFECTION
     Dosage: 400 MG EVERY DAY PO
     Route: 048
     Dates: start: 20100517, end: 20100518
  3. MOXIFLOXACIN [Suspect]
     Indication: OTITIS MEDIA
     Dosage: 400 MG EVERY DAY PO
     Route: 048
     Dates: start: 20100517, end: 20100518
  4. MOXIFLOXACIN [Suspect]
     Indication: SINUSITIS
     Dosage: 400 MG EVERY DAY PO
     Route: 048
     Dates: start: 20100517, end: 20100518

REACTIONS (2)
  - HEADACHE [None]
  - PANIC ATTACK [None]
